FAERS Safety Report 7561241-8 (Version None)
Quarter: 2011Q2

REPORT INFORMATION
  Report Type: 
  Country: None (occurrence: None)
  Receive Date: 20110621
  Receipt Date: 20110405
  Transmission Date: 20111010
  Serious: No
  Sender: FDA-Public Use
  Company Number: US-ASTRAZENECA-2011SE19509

PATIENT
  Age: 34 Year
  Sex: Female

DRUGS (1)
  1. PULMICORT [Suspect]
     Dosage: 0.50 MILLIGRAMS DAILY IN 2 CC
     Route: 055

REACTIONS (1)
  - MALAISE [None]
